FAERS Safety Report 5955265-1 (Version None)
Quarter: 2008Q4

REPORT INFORMATION
  Report Type: 
  Country: None (occurrence: None)
  Receive Date: 20081117
  Receipt Date: 20081107
  Transmission Date: 20090506
  Serious: Yes (Other)
  Sender: FDA-Public Use
  Company Number: PHHY2008GB28315

PATIENT
  Sex: Female

DRUGS (2)
  1. CLOZARIL [Suspect]
     Indication: SCHIZOPHRENIA
     Dosage: 900 MG, UNK
     Dates: start: 20080808
  2. CLOZARIL [Suspect]
     Dosage: UNK

REACTIONS (4)
  - INCORRECT DOSE ADMINISTERED [None]
  - RIGHT ATRIAL DILATATION [None]
  - TACHYCARDIA [None]
  - TREATMENT NONCOMPLIANCE [None]
